FAERS Safety Report 5409623-4 (Version None)
Quarter: 2007Q3

REPORT INFORMATION
  Report Type: 
  Country: None (occurrence: None)
  Receive Date: 20070809
  Receipt Date: 20070725
  Transmission Date: 20080115
  Serious: Yes (Hospitalization)
  Sender: FDA-Public Use
  Company Number: ES-ELI_LILLY_AND_COMPANY-ES200707006709

PATIENT
  Age: 78 Year
  Sex: Female

DRUGS (10)
  1. FORTEO [Suspect]
     Indication: OSTEOPOROSIS
     Dosage: 20 UG, UNKNOWN
     Route: 058
     Dates: start: 20061101
  2. MORPHINE [Concomitant]
     Dosage: UNK, UNKNOWN
  3. DILUTOL [Concomitant]
     Dosage: UNK, UNKNOWN
  4. DACORTIN [Concomitant]
     Dosage: UNK, UNKNOWN
  5. DIGOXIN [Concomitant]
     Dosage: UNK, UNKNOWN
  6. ACETYLSALICYLIC ACID SRT [Concomitant]
     Dosage: UNK, UNKNOWN
  7. TORADOL [Concomitant]
     Dosage: UNK, UNKNOWN
  8. ENALAPRIL MALEATE [Concomitant]
     Dosage: UNK, UNKNOWN
  9. CARDIL [Concomitant]
     Dosage: UNK, UNKNOWN
  10. ORFIDAL [Concomitant]
     Dosage: UNK, UNKNOWN

REACTIONS (3)
  - AORTIC VALVE DISEASE [None]
  - INFARCTION [None]
  - PULMONARY OEDEMA [None]
